FAERS Safety Report 14666563 (Version 1)
Quarter: 2018Q1

REPORT INFORMATION
  Report Type: Spontaneous
  Country: US (occurrence: US)
  Receive Date: 20180321
  Receipt Date: 20180321
  Transmission Date: 20180509
  Serious: Yes (Other)
  Sender: FDA-Public Use
  Company Number: US-AMGEN-USASP2018038534

PATIENT
  Sex: Female

DRUGS (3)
  1. ADRIAMYCIN [Concomitant]
     Active Substance: DOXORUBICIN HYDROCHLORIDE
     Indication: NEOPLASM MALIGNANT
     Dosage: UNK, CYCLICAL (ON DAY 1 OF A 14 DAY CYCLE)
  2. CYCLOPHOSPHAMIDE. [Concomitant]
     Active Substance: CYCLOPHOSPHAMIDE
     Indication: NEOPLASM MALIGNANT
     Dosage: UNK, CYCLICAL (ON DAY 1 OF A 14 DAY CYCLE)
  3. NEULASTA [Suspect]
     Active Substance: PEGFILGRASTIM
     Indication: PRODUCT USED FOR UNKNOWN INDICATION
     Dosage: UNK
     Route: 065

REACTIONS (1)
  - Neutrophil count abnormal [Unknown]

NARRATIVE: CASE EVENT DATE: 20180307
